FAERS Safety Report 7170456-2 (Version None)
Quarter: 2010Q4

REPORT INFORMATION
  Report Type: 
  Country: None (occurrence: None)
  Receive Date: 20101217
  Receipt Date: 20101203
  Transmission Date: 20110411
  Serious: Yes (Other)
  Sender: FDA-Public Use
  Company Number: US-ROCHE-748200

PATIENT
  Sex: Male
  Weight: 69.5 kg

DRUGS (11)
  1. XELODA [Suspect]
     Dosage: IN THE MORNING AND EVENING
     Route: 048
     Dates: start: 20101110, end: 20101116
  2. TARCEVA [Suspect]
     Route: 065
  3. OXALIPLATIN [Suspect]
     Dosage: FORM: INFUSION
     Route: 041
     Dates: start: 20101109, end: 20101109
  4. OXALIPLATIN [Suspect]
     Dosage: RECEIVED FIVE INFUSIONS.
     Route: 041
     Dates: start: 20090401, end: 20090401
  5. WARFARIN SODIUM [Concomitant]
  6. OXYCODONE HCL [Concomitant]
  7. LOMOTIL [Concomitant]
  8. FLOMAX [Concomitant]
  9. BENAZEPRIL [Concomitant]
  10. CITALOPRAM HYDROBROMIDE [Concomitant]
  11. GEMCITABINE [Concomitant]

REACTIONS (2)
  - DECREASED APPETITE [None]
  - TUMOUR MARKER INCREASED [None]
